FAERS Safety Report 21880564 (Version 1)
Quarter: 2023Q1

REPORT INFORMATION
  Report Type: Report from Study
  Country: FR (occurrence: FR)
  Receive Date: 20230118
  Receipt Date: 20230118
  Transmission Date: 20230418
  Serious: Yes (Other)
  Sender: FDA-Public Use
  Company Number: FR-JNJFOC-20221158308

PATIENT
  Age: 73 Year
  Sex: Female

DRUGS (3)
  1. PREDNISONE [Suspect]
     Active Substance: PREDNISONE
     Indication: Plasma cell myeloma
     Dosage: 60 MG/SQ.METER,DOSE4 DOSE(S)/WEEK,1WEEK(S)/CYCLE
     Route: 065
     Dates: end: 20200707
  2. VELCADE [Suspect]
     Active Substance: BORTEZOMIB
     Indication: Plasma cell myeloma
     Dosage: 1.3 MG/SQ. METER, QW, 1 DOSE(S)/WK 3 WK (S)/CYCLE
     Route: 065
     Dates: end: 20200707
  3. MELPHALAN [Suspect]
     Active Substance: MELPHALAN
     Indication: Plasma cell myeloma
     Dosage: 9 MG/SQ. METER, DOSE 4 DOSE(S)/WK, 1 WK(S)/CYCLE
     Route: 065
     Dates: end: 20200707

REACTIONS (2)
  - Cytopenia [Unknown]
  - Intentional product use issue [Unknown]

NARRATIVE: CASE EVENT DATE: 20200318
